FAERS Safety Report 21178249 (Version 3)
Quarter: 2022Q3

REPORT INFORMATION
  Report Type: Spontaneous
  Country: JP (occurrence: JP)
  Receive Date: 20220805
  Receipt Date: 20220901
  Transmission Date: 20221027
  Serious: Yes (Hospitalization, Other)
  Sender: FDA-Public Use
  Company Number: JP-DSJP-DSJ-2022-127500AA

PATIENT
  Age: 80 Year
  Sex: Male

DRUGS (4)
  1. EDOXABAN TOSYLATE [Suspect]
     Active Substance: EDOXABAN TOSYLATE
     Indication: Atrial fibrillation
     Dosage: 60MG/DAY
     Route: 048
  2. PREDNISOLONE [Concomitant]
     Active Substance: PREDNISOLONE
     Indication: Infectious pleural effusion
     Dosage: 30MG/DAY
     Route: 048
  3. PREDNISOLONE [Concomitant]
     Active Substance: PREDNISOLONE
     Indication: Interstitial lung disease
  4. AMPICILLIN AND SULBACTAM [Concomitant]
     Active Substance: AMPICILLIN SODIUM\SULBACTAM SODIUM
     Indication: Gastroenteritis staphylococcal
     Dosage: 6G/DAY
     Route: 065

REACTIONS (5)
  - Anticoagulant-related nephropathy [Not Recovered/Not Resolved]
  - Interstitial lung disease [Unknown]
  - Infectious pleural effusion [Unknown]
  - Gastroenteritis staphylococcal [Unknown]
  - Nephritis bacterial [Not Recovered/Not Resolved]
